FAERS Safety Report 23563646 (Version 2)
Quarter: 2024Q1

REPORT INFORMATION
  Report Type: Spontaneous
  Country: US (occurrence: None)
  Receive Date: 20240226
  Receipt Date: 20240304
  Transmission Date: 20240409
  Serious: Yes (Hospitalization, Other)
  Sender: FDA-Public Use
  Company Number: US-Emmaus Medical, Inc.-EMM202401-000046

PATIENT
  Age: 45 Year
  Sex: Male
  Weight: 66.67 kg

DRUGS (2)
  1. ENDARI [Suspect]
     Active Substance: GLUTAMINE
     Indication: Sickle cell disease
     Dosage: 15 G
     Route: 048
     Dates: start: 202308
  2. ENDARI [Suspect]
     Active Substance: GLUTAMINE
     Dosage: 15 G
     Route: 048
     Dates: start: 202310

REACTIONS (6)
  - Pneumonia [Unknown]
  - Toe amputation [Unknown]
  - Joint swelling [Unknown]
  - Pruritus [Unknown]
  - Back pain [Unknown]
  - Emergency care [Recovered/Resolved]

NARRATIVE: CASE EVENT DATE: 20231001
